FAERS Safety Report 7075519 (Version 2)
Quarter: 2012Q4

REPORT INFORMATION
  Report Type: Report from Study
  Country: ES (occurrence: ES)
  Receive Date: 20090807
  Receipt Date: 20120928
  Transmission Date: 20130627
  Serious: Yes (Hospitalization, Other)
  Sender: FDA-Public Use
  Company Number: ES-JNJFOC-20090709522

PATIENT
  Age: 35 Year
  Sex: Male
  Weight: 82 kg

DRUGS (4)
  1. REMICADE [Suspect]
     Indication: ANKYLOSING SPONDYLITIS
     Dosage: dose reported as ^5^ (units not provided)
     Route: 042
     Dates: start: 20030225, end: 20031203
  2. NSAIDS [Concomitant]
  3. ANTICOAGULANT [Concomitant]
  4. RABEPRAZOLE [Concomitant]

REACTIONS (2)
  - Tuberculosis [Recovered/Resolved]
  - Extrapulmonary tuberculosis [Recovered/Resolved]
